FAERS Safety Report 5706739-X (Version None)
Quarter: 2008Q2

REPORT INFORMATION
  Report Type: 
  Country: None (occurrence: None)
  Receive Date: 20080416
  Receipt Date: 20080408
  Transmission Date: 20081010
  Serious: Yes (Hospitalization)
  Sender: FDA-Public Use
  Company Number: US-BAYER-200819422NA

PATIENT
  Age: 26 Year
  Sex: Female
  Weight: 59 kg

DRUGS (1)
  1. MIRENA [Suspect]
     Indication: CONTRACEPTION
     Route: 015
     Dates: start: 20070515

REACTIONS (4)
  - AMENORRHOEA [None]
  - METRORRHAGIA [None]
  - OVARIAN CYST [None]
  - VAGINAL HAEMORRHAGE [None]
